FAERS Safety Report 4985647-6 (Version None)
Quarter: 2006Q2

REPORT INFORMATION
  Report Type: 
  Country: None (occurrence: None)
  Receive Date: 20060428
  Receipt Date: 20060421
  Transmission Date: 20061013
  Serious: Yes (Hospitalization, Other)
  Sender: FDA-Public Use
  Company Number: US-ABBOTT-06P-163-0331723-00

PATIENT
  Sex: Male

DRUGS (2)
  1. KALETRA [Suspect]
     Indication: HIV INFECTION
     Route: 048
     Dates: start: 20060324
  2. EPZICOM [Suspect]
     Indication: HIV INFECTION
     Route: 048
     Dates: start: 20060324

REACTIONS (9)
  - ACUTE RESPIRATORY FAILURE [None]
  - CHILLS [None]
  - DIARRHOEA [None]
  - DRUG TOXICITY [None]
  - HYPERHIDROSIS [None]
  - LUNG INFILTRATION [None]
  - NAUSEA [None]
  - PYREXIA [None]
  - VOMITING [None]
